FAERS Safety Report 7813457-0 (Version None)
Quarter: 2011Q4

REPORT INFORMATION
  Report Type: 
  Country: None (occurrence: None)
  Receive Date: 20111014
  Receipt Date: 20111013
  Transmission Date: 20120403
  Serious: No
  Sender: FDA-Public Use
  Company Number: US-BIOGENIDEC-2010BI015785

PATIENT
  Age: 62 Year
  Sex: Male

DRUGS (1)
  1. TYSABRI [Suspect]
     Indication: MULTIPLE SCLEROSIS
     Route: 042
     Dates: start: 20100422, end: 20110115

REACTIONS (4)
  - INJECTION SITE PRURITUS [None]
  - MEMORY IMPAIRMENT [None]
  - BALANCE DISORDER [None]
  - FATIGUE [None]
